FAERS Safety Report 9425556 (Version 1)
Quarter: 2013Q3

REPORT INFORMATION
  Report Type: Spontaneous
  Country: US (occurrence: US)
  Receive Date: 20130729
  Receipt Date: 20130729
  Transmission Date: 20140515
  Serious: No
  Sender: FDA-Public Use
  Company Number: US-MYLANLABS-2012S1021906

PATIENT
  Age: 68 Year
  Sex: Female

DRUGS (1)
  1. LEVOTHYROXINE SODIUM TABLETS, USP [Suspect]
     Indication: HYPOTHYROIDISM
     Route: 048
     Dates: start: 2002, end: 2002

REACTIONS (3)
  - Neck pain [Recovered/Resolved]
  - Insomnia [Recovered/Resolved]
  - Blood pressure increased [Recovered/Resolved]
